FAERS Safety Report 6773351-3 (Version None)
Quarter: 2010Q2

REPORT INFORMATION
  Report Type: 
  Country: None (occurrence: None)
  Receive Date: 20100614
  Receipt Date: 20100604
  Transmission Date: 20101027
  Serious: Yes (Other)
  Sender: FDA-Public Use
  Company Number: CL-122-2010

PATIENT
  Age: 67 Year
  Weight: 87.9978 kg

DRUGS (4)
  1. METRONIDAZOLE [Suspect]
     Indication: COLON OPERATION
     Dosage: 500 MG; Q8H; IV
     Route: 042
     Dates: start: 20100602, end: 20100604
  2. CIPROFLOXACIN [Concomitant]
  3. PROTONIX [Concomitant]
  4. DUONEB [Concomitant]

REACTIONS (4)
  - BONE MARROW FAILURE [None]
  - POST PROCEDURAL INFECTION [None]
  - PRODUCT QUALITY ISSUE [None]
  - PYREXIA [None]
